FAERS Safety Report 13823720 (Version 3)
Quarter: 2017Q4

REPORT INFORMATION
  Report Type: Spontaneous
  Country: US (occurrence: US)
  Receive Date: 20170802
  Receipt Date: 20171028
  Transmission Date: 20180320
  Serious: No
  Sender: FDA-Public Use
  Company Number: US-009507513-1707USA004521

PATIENT
  Age: 18 Year
  Sex: Female
  Weight: 75.74 kg

DRUGS (1)
  1. NEXPLANON [Suspect]
     Active Substance: ETONOGESTREL
     Indication: CONTRACEPTION
     Dosage: 1 IMPLANT, AT THE UPPER MEDIAL ASPECT OF THE LEFT ARM
     Route: 059
     Dates: start: 20170414

REACTIONS (3)
  - Implant site erythema [Unknown]
  - Complication associated with device [Not Recovered/Not Resolved]
  - Implant site cellulitis [Unknown]

NARRATIVE: CASE EVENT DATE: 20170504
